FAERS Safety Report 19048717 (Version 2)
Quarter: 2021Q2

REPORT INFORMATION
  Report Type: Report from Study
  Country: CN (occurrence: CN)
  Receive Date: 20210323
  Receipt Date: 20210401
  Transmission Date: 20210717
  Serious: Yes (Hospitalization)
  Sender: FDA-Public Use
  Company Number: CN-TAKEDA-2021TUS017960

PATIENT
  Sex: Male

DRUGS (6)
  1. ADVATE [Suspect]
     Active Substance: ANTIHEMOPHILIC FACTOR, HUMAN RECOMBINANT
     Dosage: 5000 INTERNATIONAL UNIT
     Dates: start: 20210113
  2. ADVATE [Suspect]
     Active Substance: ANTIHEMOPHILIC FACTOR, HUMAN RECOMBINANT
     Dosage: 5000 INTERNATIONAL UNIT
     Dates: start: 20210113
  3. ADVATE [Suspect]
     Active Substance: ANTIHEMOPHILIC FACTOR, HUMAN RECOMBINANT
     Indication: PRODUCT USED FOR UNKNOWN INDICATION
     Dosage: 2000 INTERNATIONAL UNIT,2 OR 3 DAYS
     Route: 065
     Dates: start: 20210113
  4. ADVATE [Suspect]
     Active Substance: ANTIHEMOPHILIC FACTOR, HUMAN RECOMBINANT
     Indication: PRODUCT USED FOR UNKNOWN INDICATION
     Dosage: 2000 INTERNATIONAL UNIT,2 OR 3 DAYS
     Route: 065
     Dates: start: 20210113
  5. ADVATE [Suspect]
     Active Substance: ANTIHEMOPHILIC FACTOR, HUMAN RECOMBINANT
     Indication: PRODUCT USED FOR UNKNOWN INDICATION
     Dosage: 2000 INTERNATIONAL UNIT,2 OR 3 DAYS
     Route: 065
     Dates: start: 20210113
  6. ADVATE [Suspect]
     Active Substance: ANTIHEMOPHILIC FACTOR, HUMAN RECOMBINANT
     Dosage: 5000 INTERNATIONAL UNIT
     Dates: start: 20210113

REACTIONS (2)
  - Peripheral swelling [Recovering/Resolving]
  - Joint stiffness [Recovering/Resolving]
